FAERS Safety Report 10014583 (Version 1)
Quarter: 2014Q1

REPORT INFORMATION
  Report Type: Spontaneous
  Country: BR (occurrence: BR)
  Receive Date: 20140317
  Receipt Date: 20140317
  Transmission Date: 20141002
  Serious: Yes (Other)
  Sender: FDA-Public Use
  Company Number: BR-SA-2014SA031366

PATIENT
  Age: 57 Year
  Sex: Female
  Weight: 68 kg

DRUGS (3)
  1. ALLEGRA D [Suspect]
     Indication: HYPERSENSITIVITY
     Dosage: DOSAGE/UNIT/FREQ/ AMOUNT :1 TIME
     Route: 048
     Dates: start: 20140308, end: 20140308
  2. IBUPROFEN [Concomitant]
     Indication: VIRAL PHARYNGITIS
     Dosage: 3 TIMES A DAY
     Route: 048
     Dates: start: 20140307, end: 20140308
  3. IBUPROFEN [Concomitant]
     Indication: PAIN
     Dosage: 3 TIMES A DAY
     Route: 048
     Dates: start: 20140307, end: 20140308

REACTIONS (6)
  - Depressed level of consciousness [Recovered/Resolved]
  - Hypoaesthesia [Recovered/Resolved]
  - Somnolence [Recovered/Resolved]
  - Abdominal pain [Recovered/Resolved]
  - Nausea [Recovered/Resolved]
  - Somnolence [Recovered/Resolved]
